FAERS Safety Report 7537915-1 (Version None)
Quarter: 2011Q2

REPORT INFORMATION
  Report Type: 
  Country: None (occurrence: None)
  Receive Date: 20110609
  Receipt Date: 20070117
  Transmission Date: 20111010
  Serious: Yes (Other)
  Sender: FDA-Public Use
  Company Number: CA-GENENTECH-319884

PATIENT
  Sex: Male
  Weight: 85.5 kg

DRUGS (3)
  1. XOLAIR [Suspect]
     Indication: ASTHMA
     Dosage: 300 MG, UNKNOWN
     Route: 058
     Dates: start: 20050930
  2. VENTOLIN HFA [Concomitant]
     Indication: PRODUCT USED FOR UNKNOWN INDICATION
  3. ADVAIR DISKUS 100/50 [Concomitant]
     Indication: PRODUCT USED FOR UNKNOWN INDICATION

REACTIONS (5)
  - HAEMOPTYSIS [None]
  - COUGH [None]
  - WHEEZING [None]
  - CHEST DISCOMFORT [None]
  - PULMONARY CONGESTION [None]
